FAERS Safety Report 13746889 (Version 1)
Quarter: 2017Q3

REPORT INFORMATION
  Report Type: Spontaneous
  Country: FR (occurrence: FR)
  Receive Date: 20170712
  Receipt Date: 20170712
  Transmission Date: 20171127
  Serious: Yes (Other)
  Sender: FDA-Public Use
  Company Number: FR-BAYER-2017-132828

PATIENT
  Sex: Female

DRUGS (1)
  1. MIRENA [Suspect]
     Active Substance: LEVONORGESTREL
     Indication: CONTRACEPTION
     Dosage: 20 MCG/24HR, CONT
     Route: 015
     Dates: start: 20120702

REACTIONS (14)
  - Migraine [Unknown]
  - Back pain [Unknown]
  - Irritability [Unknown]
  - Visual impairment [Unknown]
  - Nausea [Unknown]
  - Depression [Unknown]
  - Arthralgia [Unknown]
  - Ovarian cyst [Unknown]
  - Weight increased [Unknown]
  - Alopecia [Unknown]
  - Amnesia [Unknown]
  - Libido decreased [Unknown]
  - Abdominal pain [Unknown]
  - Abdominal distension [Unknown]
